FAERS Safety Report 7391095-4 (Version None)
Quarter: 2011Q2

REPORT INFORMATION
  Report Type: 
  Country: None (occurrence: None)
  Receive Date: 20110404
  Receipt Date: 20110321
  Transmission Date: 20111010
  Serious: Yes (Death, Life-Threatening, Hospitalization)
  Sender: FDA-Public Use
  Company Number: SE-JNJFOC-20110308942

PATIENT
  Age: 66 Year
  Sex: Male

DRUGS (5)
  1. KETOPROFEN [Concomitant]
     Route: 048
  2. METHOTREXATE [Suspect]
     Indication: RHEUMATOID ARTHRITIS
  3. ACETAMINOPHEN [Concomitant]
     Route: 048
  4. BEHEPAN [Concomitant]
     Route: 048
  5. REMICADE [Suspect]
     Indication: RHEUMATOID ARTHRITIS
     Route: 042

REACTIONS (19)
  - SEPSIS [None]
  - HAEMORRHAGE [None]
  - MENTAL DISORDER [None]
  - LIVER DISORDER [None]
  - RESPIRATORY TRACT INFECTION FUNGAL [None]
  - SEPTIC SHOCK [None]
  - FUNGAL INFECTION [None]
  - DIARRHOEA [None]
  - GASTROINTESTINAL FUNGAL INFECTION [None]
  - PANCYTOPENIA [None]
  - TULARAEMIA [None]
  - CIRCULATORY COLLAPSE [None]
  - BACTERIAL SEPSIS [None]
  - CONFUSIONAL STATE [None]
  - PATHOGEN RESISTANCE [None]
  - RENAL FAILURE [None]
  - STREPTOCOCCUS TEST POSITIVE [None]
  - DISSEMINATED INTRAVASCULAR COAGULATION [None]
  - BLOOD PRESSURE DECREASED [None]
